FAERS Safety Report 16639343 (Version 2)
Quarter: 2019Q3

REPORT INFORMATION
  Report Type: Report from Study
  Country: CA (occurrence: CA)
  Receive Date: 20190726
  Receipt Date: 20190802
  Transmission Date: 20191004
  Serious: Yes (Other)
  Sender: FDA-Public Use
  Company Number: CA-BIOGEN-2019BI00762523

PATIENT
  Age: 33 Year
  Sex: Female

DRUGS (2)
  1. TECFIDERA [Suspect]
     Active Substance: DIMETHYL FUMARATE
     Dosage: TITRATION DOSE REGIME
     Route: 048
     Dates: start: 20190625
  2. TECFIDERA [Suspect]
     Active Substance: DIMETHYL FUMARATE
     Indication: MULTIPLE SCLEROSIS
     Dosage: STARTING DOSE
     Route: 048
     Dates: start: 20190625

REACTIONS (4)
  - Gastritis haemorrhagic [Unknown]
  - Prescribed underdose [Unknown]
  - Duodenal ulcer [Unknown]
  - Flushing [Unknown]

NARRATIVE: CASE EVENT DATE: 20190625
